FAERS Safety Report 8800687 (Version 1)
Quarter: 2012Q4

REPORT INFORMATION
  Report Type: 
  Country: US (occurrence: US)
  Receive Date: 20120921
  Receipt Date: 20120921
  Transmission Date: 20130627
  Serious: Yes (Death, Other)
  Sender: FDA-Public Use
  Company Number: US-ABBOTT-12P-163-0980433-00

PATIENT
  Sex: Female

DRUGS (3)
  1. DEPAKOTE [Suspect]
     Indication: DEMENTIA
  2. DEPAKOTE [Suspect]
     Dates: start: 20101103
  3. DEPAKOTE [Suspect]
     Dates: start: 20101114

REACTIONS (4)
  - General physical health deterioration [Fatal]
  - Overdose [Unknown]
  - Drug prescribing error [Unknown]
  - Unresponsive to stimuli [Fatal]
